FAERS Safety Report 6484416-8 (Version None)
Quarter: 2009Q4

REPORT INFORMATION
  Report Type: 
  Country: None (occurrence: None)
  Receive Date: 20091209
  Receipt Date: 20091203
  Transmission Date: 20100525
  Serious: Yes (Death)
  Sender: FDA-Public Use
  Company Number: SK-CELGENEUS-260-21880-09120374

PATIENT

DRUGS (2)
  1. REVLIMID [Suspect]
     Indication: MULTIPLE MYELOMA
     Route: 048
     Dates: start: 20090401, end: 20090901
  2. REVLIMID [Suspect]
     Route: 048
     Dates: start: 20090901

REACTIONS (2)
  - HYPERCALCAEMIA [None]
  - MULTIPLE MYELOMA [None]
